FAERS Safety Report 5663810-9 (Version None)
Quarter: 2008Q1

REPORT INFORMATION
  Report Type: 
  Country: None (occurrence: None)
  Receive Date: 20080310
  Receipt Date: 20080303
  Transmission Date: 20080703
  Serious: Yes (Hospitalization, Disabling)
  Sender: FDA-Public Use
  Company Number: WAES 0710GBR00034

PATIENT
  Age: 75 Year
  Sex: Female

DRUGS (17)
  1. COZAAR [Suspect]
     Indication: CARDIAC FAILURE CONGESTIVE
     Dosage: PO
     Route: 048
     Dates: start: 20030930
  2. ZETIA [Concomitant]
  3. ZOCOR [Concomitant]
  4. ALBUTEROL [Concomitant]
  5. ALBUTEROL SULFATE (+) IPRATROPIUM BROMID [Concomitant]
  6. ASPIRIN [Concomitant]
  7. DIGOXIN [Concomitant]
  8. FLUTICASONE PROPIONATE (+) SALMETEROL XI [Concomitant]
  9. FUROSEMIDE [Concomitant]
  10. ISOSORBIDE DINITRATE [Concomitant]
  11. ISOSORBIDE MONONITRATE [Concomitant]
  12. NITROGLYCERIN [Concomitant]
  13. PROPANTHELINE BROMIDE [Concomitant]
  14. PYRIDOSTIGMINE BROMIDE [Concomitant]
  15. SALMETEROL [Concomitant]
  16. SPIRONOLACTONE [Concomitant]
  17. THEOPHYLLINE [Concomitant]

REACTIONS (10)
  - ANAEMIA [None]
  - ASTHMA [None]
  - FALL [None]
  - FEMORAL NECK FRACTURE [None]
  - GASTRITIS EROSIVE [None]
  - LOSS OF CONSCIOUSNESS [None]
  - LOWER RESPIRATORY TRACT INFECTION [None]
  - LYMPHOCYTE COUNT DECREASED [None]
  - OESOPHAGITIS [None]
  - SYNCOPE VASOVAGAL [None]
